FAERS Safety Report 17615951 (Version 1)
Quarter: 2020Q2

REPORT INFORMATION
  Report Type: Spontaneous
  Country: US (occurrence: US)
  Receive Date: 20200402
  Receipt Date: 20200402
  Transmission Date: 20200713
  Serious: No
  Sender: FDA-Public Use
  Company Number: US-UCBSA-2019027229

PATIENT
  Sex: Male

DRUGS (1)
  1. NEUPRO [Suspect]
     Active Substance: ROTIGOTINE
     Indication: RESTLESS LEGS SYNDROME
     Dosage: 3 MILLIGRAM, UNK
     Dates: start: 2018

REACTIONS (3)
  - Application site erythema [Not Recovered/Not Resolved]
  - Application site discolouration [Unknown]
  - Application site pruritus [Not Recovered/Not Resolved]
